FAERS Safety Report 26043061 (Version 1)
Quarter: 2025Q4

REPORT INFORMATION
  Report Type: Spontaneous
  Country: US (occurrence: US)
  Receive Date: 20251113
  Receipt Date: 20251113
  Transmission Date: 20260117
  Serious: Yes (Hospitalization)
  Sender: ANI
  Company Number: US-ANIPHARMA-2025-US-048112

PATIENT
  Age: 63 Year
  Sex: Male
  Weight: 129.28 kg

DRUGS (16)
  1. FUROSEMIDE [Concomitant]
     Active Substance: FUROSEMIDE
  2. GABAPENTIN [Concomitant]
     Active Substance: GABAPENTIN
  3. METHOTREXATE SODIUM [Concomitant]
     Active Substance: METHOTREXATE SODIUM
  4. MOUNJARO [Concomitant]
     Active Substance: TIRZEPATIDE
  5. POTASSIUM [Concomitant]
     Active Substance: POTASSIUM
  6. RAMIPRIL [Concomitant]
     Active Substance: RAMIPRIL
  7. OXYCODONE HYDROCHLORIDE [Concomitant]
     Active Substance: OXYCODONE HYDROCHLORIDE
  8. RINVOQ [Suspect]
     Active Substance: UPADACITINIB
  9. SYNTHROID [Concomitant]
     Active Substance: LEVOTHYROXINE SODIUM
  10. TIZANIDINE HYDROCHLORIDE [Concomitant]
     Active Substance: TIZANIDINE HYDROCHLORIDE
  11. ATENOLOL [Concomitant]
     Active Substance: ATENOLOL
  12. ATORVASTATIN CALCIUM [Concomitant]
     Active Substance: ATORVASTATIN CALCIUM
  13. ERGOCALCIFEROL [Concomitant]
     Active Substance: ERGOCALCIFEROL
  14. FAMOTIDINE [Concomitant]
     Active Substance: FAMOTIDINE
  15. FOLIC ACID [Concomitant]
     Active Substance: FOLIC ACID
  16. CORTICOTROPIN [Suspect]
     Active Substance: CORTICOTROPIN
     Indication: Rheumatoid arthritis
     Dosage: 80 UNITS 2 TIMES A WEEK
     Route: 058
     Dates: start: 20250124

REACTIONS (2)
  - Infection [Unknown]
  - Contraindicated product administered [Not Recovered/Not Resolved]

NARRATIVE: CASE EVENT DATE: 20250925
